FAERS Safety Report 7391434 (Version 10)
Quarter: 2021Q3

REPORT INFORMATION
  Report Type: Spontaneous
  Country: GB (occurrence: GB)
  Receive Date: 20100518
  Receipt Date: 20210721
  Transmission Date: 20211014
  Serious: Yes (Hospitalization, Disabling, Other)
  Sender: FDA-Public Use
  Company Number: GB-BAYER-201024904GPV

PATIENT
  Age: 70 Year
  Sex: Male

DRUGS (14)
  1. CLOPIDOGREL [Interacting]
     Active Substance: CLOPIDOGREL BISULFATE
     Indication: CHEST PAIN
     Dosage: 300 MG (DAILY DOSE), ONCE,
  2. ASPIRIN. [Suspect]
     Active Substance: ASPIRIN
     Indication: CHEST PAIN
     Dosage: 300 MG (DAILY DOSE), ONCE,
  3. ASPIRIN. [Suspect]
     Active Substance: ASPIRIN
     Indication: CHEST PAIN
     Dosage: 300 MG, UNK
     Route: 065
  4. ERYTHROMYCIN. [Interacting]
     Active Substance: ERYTHROMYCIN
     Indication: PERIORBITAL CELLULITIS
     Dosage: 250 MG, QID
     Route: 048
  5. MEROPENEM. [Interacting]
     Active Substance: MEROPENEM
     Indication: PERIORBITAL CELLULITIS
     Route: 042
  6. VITAMIN K [Concomitant]
     Active Substance: PHYTONADIONE
     Indication: HYPHAEMA
  7. CIPROFLOXACIN. [Suspect]
     Active Substance: CIPROFLOXACIN
     Indication: PERIORBITAL CELLULITIS
     Route: 048
  8. WARFARIN [Interacting]
     Active Substance: WARFARIN
     Indication: PULMONARY EMBOLISM
  9. ASPIRIN. [Suspect]
     Active Substance: ASPIRIN
     Indication: ANTIPLATELET THERAPY
     Dosage: 75 MG (DAILY DOSE), ,
  10. ASPIRIN. [Suspect]
     Active Substance: ASPIRIN
     Indication: CHEST PAIN
     Dosage: 75 MG, UNK
     Route: 065
  11. TEICOPLANIN [Interacting]
     Active Substance: TEICOPLANIN
     Indication: PERIORBITAL CELLULITIS
     Route: 030
  12. METRONIDAZOLE. [Interacting]
     Active Substance: METRONIDAZOLE
     Indication: PERIORBITAL CELLULITIS
     Route: 048
  13. CLOPIDOGREL [Interacting]
     Active Substance: CLOPIDOGREL BISULFATE
     Indication: CHEST PAIN
     Dosage: 75 MG (DAILY DOSE), ,
  14. VITAMIN K [Concomitant]
     Active Substance: PHYTONADIONE
     Indication: PRODUCT USED FOR UNKNOWN INDICATION
     Route: 065

REACTIONS (12)
  - Hyphaema [Recovered/Resolved with Sequelae]
  - Eye pain [Recovered/Resolved with Sequelae]
  - Decreased appetite [Recovered/Resolved with Sequelae]
  - Pyrexia [Recovered/Resolved with Sequelae]
  - Intraocular pressure increased [Recovered/Resolved with Sequelae]
  - Headache [Recovered/Resolved with Sequelae]
  - Nausea [Recovered/Resolved with Sequelae]
  - Visual acuity reduced [Unknown]
  - International normalised ratio increased [Recovered/Resolved]
  - Coagulation time prolonged [Recovered/Resolved]
  - Drug interaction [Not Recovered/Not Resolved]
  - Drug interaction [Recovered/Resolved]
